FAERS Safety Report 14538083 (Version 1)
Quarter: 2018Q1

REPORT INFORMATION
  Report Type: Report from Study
  Country: BR (occurrence: BR)
  Receive Date: 20180216
  Receipt Date: 20180216
  Transmission Date: 20180509
  Serious: Yes (Life-Threatening, Hospitalization)
  Sender: FDA-Public Use
  Company Number: BR-UCBSA-2018005154

PATIENT
  Age: 58 Year
  Sex: Female

DRUGS (3)
  1. LEVETIRACETAM. [Suspect]
     Active Substance: LEVETIRACETAM
     Dosage: 750 MG, 2X/DAY (BID)
     Route: 048
  2. LEVETIRACETAM. [Suspect]
     Active Substance: LEVETIRACETAM
     Indication: SEIZURE
     Dosage: 1250 MG, 2X/DAY (BID)
     Route: 048
     Dates: start: 201706
  3. LEVETIRACETAM. [Suspect]
     Active Substance: LEVETIRACETAM
     Dosage: 500 MG, 2X/DAY (BID)
     Route: 048

REACTIONS (3)
  - Cerebrovascular accident [Unknown]
  - Seizure [Recovered/Resolved]
  - Aneurysm [Unknown]

NARRATIVE: CASE EVENT DATE: 20180201
